FAERS Safety Report 4876946-7 (Version None)
Quarter: 2006Q1

REPORT INFORMATION
  Report Type: 
  Country: None (occurrence: None)
  Receive Date: 20060110
  Receipt Date: 20051208
  Transmission Date: 20060701
  Serious: Yes (Hospitalization, Other)
  Sender: FDA-Public Use
  Company Number: GBWYE218009DEC05

PATIENT
  Sex: Female

DRUGS (5)
  1. ENBREL [Suspect]
     Indication: JUVENILE ARTHRITIS
     Dosage: UNKNOWN
     Route: 058
     Dates: start: 20050830, end: 20051128
  2. DICLOFENAC [Concomitant]
  3. RISEDRONATE [Concomitant]
     Dates: start: 20050811
  4. CALCICHEW [Concomitant]
     Dates: start: 20050815
  5. CODEINE [Concomitant]

REACTIONS (1)
  - OPTIC NEURITIS [None]
